FAERS Safety Report 7715295-6 (Version None)
Quarter: 2011Q3

REPORT INFORMATION
  Report Type: 
  Country: None (occurrence: None)
  Receive Date: 20110829
  Receipt Date: 20110826
  Transmission Date: 20111222
  Serious: Yes (Death)
  Sender: FDA-Public Use
  Company Number: PHEH2011US02554

PATIENT
  Sex: Female

DRUGS (8)
  1. XANAX [Concomitant]
     Dosage: 0.5 MG, UNK
     Route: 065
  2. VITAMIN B-12 [Concomitant]
     Dosage: 50 MG, UNK
     Route: 065
  3. AMBIEN [Concomitant]
     Dosage: 10 MG, UNK
     Route: 065
  4. PARIZAC [Concomitant]
     Dosage: 10 MG, UNK
     Route: 065
  5. THIORIDAZINE HCL [Concomitant]
     Dosage: 100 MG, UNK
     Route: 065
  6. CALCIUM CARBONATE [Concomitant]
     Dosage: 600 MG, UNK
     Route: 065
  7. GLEEVEC [Suspect]
     Dosage: 400 MG, BID
     Route: 048
  8. MULTI-VITAMINS [Concomitant]
     Dosage: UNK UKN, UNK
     Route: 065

REACTIONS (1)
  - DEATH [None]
